FAERS Safety Report 8274234-2 (Version None)
Quarter: 2012Q2

REPORT INFORMATION
  Report Type: 
  Country: None (occurrence: None)
  Receive Date: 20120411
  Receipt Date: 20120405
  Transmission Date: 20120825
  Serious: Yes (Death, Other)
  Sender: FDA-Public Use
  Company Number: US-BAYER-200943308NA

PATIENT
  Age: 72 Year
  Sex: Male
  Weight: 70 kg

DRUGS (10)
  1. TRASYLOL [Suspect]
     Indication: CORONARY ARTERY BYPASS
     Dosage: UNK
     Route: 042
     Dates: start: 20050720
  2. LOPRESSOR SR [Concomitant]
     Dosage: 100 MG, QD
     Route: 048
  3. POTASSIUM CHLORIDE [Concomitant]
     Dosage: 40 MEQ, QD
     Route: 048
  4. LISINOPRIL [Concomitant]
     Dosage: 5 MG, QD
     Route: 048
  5. TOPROL-XL [Concomitant]
     Route: 048
  6. PLENDIL [Concomitant]
     Dosage: 10 MG, QD
     Route: 048
  7. PLAVIX [Concomitant]
     Dosage: 75 MG, QD
     Route: 048
  8. ZOCOR [Concomitant]
     Dosage: 80 MG, QD
     Route: 048
  9. COUMADIN [Concomitant]
     Dosage: 5 MG, QD
     Route: 048
  10. ASPIRIN [Concomitant]
     Dosage: 81 MG, QD
     Route: 048

REACTIONS (7)
  - RENAL INJURY [None]
  - RENAL FAILURE [None]
  - INJURY [None]
  - PAIN [None]
  - UNEVALUABLE EVENT [None]
  - DEATH [None]
  - RENAL FAILURE ACUTE [None]
